FAERS Safety Report 5478064-6 (Version None)
Quarter: 2007Q4

REPORT INFORMATION
  Report Type: 
  Country: None (occurrence: None)
  Receive Date: 20071005
  Receipt Date: 20060918
  Transmission Date: 20080405
  Serious: No
  Sender: FDA-Public Use
  Company Number: US-BRISTOL-MYERS SQUIBB COMPANY-13513023

PATIENT
  Age: 50 Year
  Sex: Male
  Weight: 102 kg

DRUGS (3)
  1. AVAPRO [Suspect]
     Indication: HYPERTENSION
  2. CELEBREX [Concomitant]
  3. ASPIRIN [Concomitant]

REACTIONS (5)
  - CHEST PAIN [None]
  - DIZZINESS [None]
  - MOTION SICKNESS [None]
  - TREMOR [None]
  - VOMITING [None]
